FAERS Safety Report 15969785 (Version 4)
Quarter: 2019Q2

REPORT INFORMATION
  Report Type: Spontaneous
  Country: US (occurrence: US)
  Receive Date: 20190215
  Receipt Date: 20190523
  Transmission Date: 20190711
  Serious: Yes (Other)
  Sender: FDA-Public Use
  Company Number: US-ASTRAZENECA-2018SF64716

PATIENT
  Sex: Female

DRUGS (40)
  1. NEXIUM [Suspect]
     Active Substance: ESOMEPRAZOLE MAGNESIUM
     Route: 048
     Dates: start: 20040101, end: 20081231
  2. PREVACID 24 HR [Suspect]
     Active Substance: LANSOPRAZOLE
     Route: 065
  3. LEVALBUTEROL. [Concomitant]
     Active Substance: LEVALBUTEROL
  4. TIZANIDINE. [Concomitant]
     Active Substance: TIZANIDINE
  5. LIPITOR [Concomitant]
     Active Substance: ATORVASTATIN CALCIUM
  6. PRILOSEC [Suspect]
     Active Substance: OMEPRAZOLE MAGNESIUM
     Route: 048
  7. PRILOSEC OTC [Suspect]
     Active Substance: OMEPRAZOLE MAGNESIUM
     Route: 048
  8. AMOXICILLIN. [Concomitant]
     Active Substance: AMOXICILLIN
  9. ATORVASTATIN [Concomitant]
     Active Substance: ATORVASTATIN
  10. HYDROXYZINE [Concomitant]
     Active Substance: HYDROXYZINE HYDROCHLORIDE
  11. PROTONIX [Suspect]
     Active Substance: PANTOPRAZOLE SODIUM
     Route: 065
     Dates: start: 20000220, end: 20040101
  12. SEROQUEL [Concomitant]
     Active Substance: QUETIAPINE FUMARATE
  13. SERTRALINE [Concomitant]
     Active Substance: SERTRALINE HYDROCHLORIDE
  14. IBUPROFEN. [Concomitant]
     Active Substance: IBUPROFEN
  15. PREVACID [Suspect]
     Active Substance: LANSOPRAZOLE
     Route: 065
  16. VITAMIN D2 [Concomitant]
     Active Substance: ERGOCALCIFEROL
  17. CELECOXIB. [Concomitant]
     Active Substance: CELECOXIB
  18. CITALOPRAM [Concomitant]
     Active Substance: CITALOPRAM HYDROBROMIDE
  19. LORAZEPAM. [Concomitant]
     Active Substance: LORAZEPAM
  20. POTASSIUM CHLORIDE. [Concomitant]
     Active Substance: POTASSIUM CHLORIDE
  21. NEXIUM [Suspect]
     Active Substance: ESOMEPRAZOLE MAGNESIUM
     Route: 048
  22. ALPRAZOLAM. [Concomitant]
     Active Substance: ALPRAZOLAM
  23. NITROFURANTOIN. [Concomitant]
     Active Substance: NITROFURANTOIN
  24. TRAMADOL. [Concomitant]
     Active Substance: TRAMADOL
  25. MIDODRINE [Concomitant]
     Active Substance: MIDODRINE
  26. TOPIRAMATE. [Concomitant]
     Active Substance: TOPIRAMATE
  27. FLUOXETINE [Concomitant]
     Active Substance: FLUOXETINE HYDROCHLORIDE
  28. CYANOCOBALAMIN. [Concomitant]
     Active Substance: CYANOCOBALAMIN
  29. MIDODRINE [Concomitant]
     Active Substance: MIDODRINE
  30. NASONEX [Concomitant]
     Active Substance: MOMETASONE FUROATE
  31. PRILOSEC [Suspect]
     Active Substance: OMEPRAZOLE MAGNESIUM
     Route: 048
  32. FLUTICASONE. [Concomitant]
     Active Substance: FLUTICASONE
  33. ZOLPIDEM TARTRATE. [Concomitant]
     Active Substance: ZOLPIDEM TARTRATE
  34. ALBUTEROL. [Concomitant]
     Active Substance: ALBUTEROL
  35. LIDODERM [Concomitant]
     Active Substance: LIDOCAINE
  36. NEXIUM 24HR [Suspect]
     Active Substance: ESOMEPRAZOLE MAGNESIUM
     Route: 048
  37. PREVACID [Suspect]
     Active Substance: LANSOPRAZOLE
     Route: 065
  38. ADVAIR HFA [Concomitant]
     Active Substance: FLUTICASONE PROPIONATE\SALMETEROL XINAFOATE
  39. FUROSEMIDE. [Concomitant]
     Active Substance: FUROSEMIDE
  40. CLONAZEPAM. [Concomitant]
     Active Substance: CLONAZEPAM

REACTIONS (2)
  - Renal injury [Unknown]
  - Chronic kidney disease [Unknown]
